FAERS Safety Report 7638086-3 (Version None)
Quarter: 2011Q3

REPORT INFORMATION
  Report Type: 
  Country: None (occurrence: None)
  Receive Date: 20110720
  Receipt Date: 20110617
  Transmission Date: 20111222
  Serious: Yes (Hospitalization, Other)
  Sender: FDA-Public Use
  Company Number: HA11-142-AE

PATIENT
  Age: 75 Year
  Sex: Male
  Weight: 103.8737 kg

DRUGS (11)
  1. DIOVAN HCT [Concomitant]
  2. MULTI-VITAMIN [Concomitant]
  3. NOVOLOG [Concomitant]
  4. BYSTOLIC [Concomitant]
  5. TYLENOL-500 [Concomitant]
  6. LANTUS [Concomitant]
  7. SULFAMETHOXAZOLE AND TRIMETHOPRIM [Suspect]
     Indication: URINARY TRACT INFECTION
     Dosage: 1 TABLET, BID, FOR 7 DAYS
     Dates: start: 20110215, end: 20110221
  8. ASPIRIN [Concomitant]
  9. VITAMIN D [Concomitant]
  10. SPIRONOLACTONE [Concomitant]
  11. BENAZEPRIL HYDROCHLORIDE [Concomitant]

REACTIONS (15)
  - DIARRHOEA [None]
  - INSULIN-REQUIRING TYPE 2 DIABETES MELLITUS [None]
  - BLOOD GLUCOSE DECREASED [None]
  - FATIGUE [None]
  - ABDOMINAL DISCOMFORT [None]
  - PCO2 DECREASED [None]
  - BLOOD POTASSIUM INCREASED [None]
  - GAIT DISTURBANCE [None]
  - NAUSEA [None]
  - HYPERKALAEMIA [None]
  - HYPERTENSION [None]
  - MUSCLE SPASMS [None]
  - BALANCE DISORDER [None]
  - MYALGIA [None]
  - RENAL FAILURE ACUTE [None]
